FAERS Safety Report 10085610 (Version 2)
Quarter: 2014Q2

REPORT INFORMATION
  Report Type: Spontaneous
  Country: JP (occurrence: JP)
  Receive Date: 20140418
  Receipt Date: 20140418
  Transmission Date: 20141212
  Serious: Yes (Hospitalization)
  Sender: FDA-Public Use
  Company Number: JP-ASTRAZENECA-2014SE19503

PATIENT
  Age: 72 Year
  Sex: Female

DRUGS (2)
  1. CRESTOR [Suspect]
     Indication: HYPERLIPIDAEMIA
     Route: 048
     Dates: start: 2004, end: 20140318
  2. NORVASC [Suspect]
     Indication: HYPERLIPIDAEMIA
     Route: 048
     Dates: end: 20140318

REACTIONS (2)
  - Thyroid function test abnormal [Not Recovered/Not Resolved]
  - Myopathy [Recovered/Resolved]
